FAERS Safety Report 11928824 (Version 4)
Quarter: 2016Q1

REPORT INFORMATION
  Report Type: Spontaneous
  Country: GT (occurrence: GT)
  Receive Date: 20160119
  Receipt Date: 20160302
  Transmission Date: 20160526
  Serious: Yes (Hospitalization, Other)
  Sender: FDA-Public Use
  Company Number: PHHY2016GT004471

PATIENT
  Sex: Male

DRUGS (2)
  1. IBUPROFEN. [Concomitant]
     Active Substance: IBUPROFEN
     Indication: ARTHRITIS
     Route: 065
  2. CO-DIOVAN [Suspect]
     Active Substance: HYDROCHLOROTHIAZIDE\VALSARTAN
     Indication: HYPERTENSION
     Route: 065

REACTIONS (5)
  - Dengue fever [Recovered/Resolved]
  - Haematochezia [Recovering/Resolving]
  - Anaemia [Not Recovered/Not Resolved]
  - Arthropathy [Unknown]
  - Limb discomfort [Unknown]
